FAERS Safety Report 16068155 (Version 1)
Quarter: 2019Q1

REPORT INFORMATION
  Report Type: Spontaneous
  Country: US (occurrence: US)
  Receive Date: 20190313
  Receipt Date: 20190313
  Transmission Date: 20190418
  Serious: Yes (Hospitalization)
  Sender: FDA-Public Use
  Company Number: US-JNJFOC-20190310168

PATIENT
  Sex: Female

DRUGS (1)
  1. CHLORZOXAZONE. [Suspect]
     Active Substance: CHLORZOXAZONE
     Indication: PAIN
     Route: 065

REACTIONS (3)
  - Ankle fracture [Unknown]
  - Intervertebral disc degeneration [Unknown]
  - Seizure [Unknown]

NARRATIVE: CASE EVENT DATE: 2018
